FAERS Safety Report 8095080-9 (Version None)
Quarter: 2012Q1

REPORT INFORMATION
  Report Type: 
  Country: None (occurrence: None)
  Receive Date: 20120131
  Receipt Date: 20120126
  Transmission Date: 20120608
  Serious: No
  Sender: FDA-Public Use
  Company Number: US-TEVA-317104USA

PATIENT
  Sex: Female
  Weight: 61.29 kg

DRUGS (9)
  1. KLONOPIN [Concomitant]
     Indication: DEPRESSION
     Route: 048
  2. PLAN B ONE-STEP [Suspect]
     Indication: POST COITAL CONTRACEPTION
     Dosage: 1.5 MILLIGRAM;
     Route: 048
     Dates: start: 20120101, end: 20120101
  3. LOESTRIN 24 FE [Concomitant]
     Indication: CONTRACEPTION
     Route: 048
     Dates: start: 20050101
  4. PLAN B ONE-STEP [Suspect]
     Dosage: 1.5 MILLIGRAM;
     Route: 048
     Dates: start: 20120118, end: 20120118
  5. PLAN B ONE-STEP [Suspect]
     Dosage: 1.5 MILLIGRAM;
     Route: 048
     Dates: start: 20120103, end: 20120103
  6. KLONOPIN [Concomitant]
     Indication: ANXIETY
  7. WELLBUTRIN [Concomitant]
     Indication: ANXIETY
  8. PRISTIQ [Concomitant]
     Indication: DEPRESSION
     Route: 048
  9. WELLBUTRIN [Concomitant]
     Indication: DEPRESSION
     Route: 048

REACTIONS (1)
  - MENSTRUATION IRREGULAR [None]
